FAERS Safety Report 6206277-4 (Version None)
Quarter: 2009Q2

REPORT INFORMATION
  Report Type: 
  Country: None (occurrence: None)
  Receive Date: 20090528
  Receipt Date: 20090519
  Transmission Date: 20091009
  Serious: Yes (Hospitalization)
  Sender: FDA-Public Use
  Company Number: US-ROCHE-634317

PATIENT
  Sex: Female
  Weight: 76.7 kg

DRUGS (2)
  1. CAPECITABINE [Suspect]
     Indication: COLORECTAL CANCER
     Dosage: 1500 MG AM, 1500 MG PM
     Route: 048
     Dates: start: 20081001, end: 20090515
  2. METOPROLOL SUCCINATE [Concomitant]

REACTIONS (1)
  - FALL [None]
